FAERS Safety Report 22248603 (Version 2)
Quarter: 2023Q2

REPORT INFORMATION
  Report Type: Spontaneous
  Country: IT (occurrence: IT)
  Receive Date: 20230425
  Receipt Date: 20230502
  Transmission Date: 20230722
  Serious: Yes (Death, Life-Threatening, Hospitalization, Other)
  Sender: FDA-Public Use
  Company Number: IT-ALKEM LABORATORIES LIMITED-IT-ALKEM-2023-04416

PATIENT
  Age: 57 Year
  Sex: Female

DRUGS (3)
  1. LINEZOLID [Suspect]
     Active Substance: LINEZOLID
     Indication: Staphylococcal infection
     Dosage: 600 MILLIGRAM, BID (TWICE A DAY)
     Route: 065
  2. LINEZOLID [Suspect]
     Active Substance: LINEZOLID
     Indication: Peritonitis
  3. LINEZOLID [Suspect]
     Active Substance: LINEZOLID
     Indication: Bacterial infection

REACTIONS (4)
  - Lactic acidosis [Fatal]
  - Drug level increased [Fatal]
  - Pancytopenia [Unknown]
  - Toxicity to various agents [Unknown]
